FAERS Safety Report 11396836 (Version 1)
Quarter: 2015Q3

REPORT INFORMATION
  Report Type: Spontaneous
  Country: US (occurrence: US)
  Receive Date: 20150819
  Receipt Date: 20150819
  Transmission Date: 20151125
  Serious: No
  Sender: FDA-Public Use
  Company Number: US-BAYER-2015-396273

PATIENT
  Age: 94 Year
  Sex: Female

DRUGS (1)
  1. DESONATE [Suspect]
     Active Substance: DESONIDE
     Indication: RASH
     Dosage: UNK, BID

REACTIONS (6)
  - Pain [Not Recovered/Not Resolved]
  - Drug ineffective [None]
  - Skin exfoliation [Not Recovered/Not Resolved]
  - Skin tightness [Not Recovered/Not Resolved]
  - Dry skin [Not Recovered/Not Resolved]
  - Erythema [Not Recovered/Not Resolved]
